FAERS Safety Report 19983101 (Version 6)
Quarter: 2021Q4

REPORT INFORMATION
  Report Type: Report from Study
  Country: NZ (occurrence: NZ)
  Receive Date: 20211021
  Receipt Date: 20211206
  Transmission Date: 20220303
  Serious: Yes (Hospitalization)
  Sender: FDA-Public Use
  Company Number: NVSC2021NZ237456

PATIENT
  Age: 14 Year
  Sex: Female
  Weight: 64.55 kg

DRUGS (7)
  1. TRAMETINIB [Suspect]
     Active Substance: TRAMETINIB
     Indication: Neurofibromatosis
     Dosage: 0.025 MG/KG WITH 25% DOSE REDUCTION
     Route: 048
     Dates: start: 20180513
  2. ACETAMINOPHEN [Concomitant]
     Active Substance: ACETAMINOPHEN
     Indication: Headache
     Dosage: 1 G, PRN TAKES ABOUT 1X/WEEK
     Route: 065
  3. IBUPROFEN [Concomitant]
     Active Substance: IBUPROFEN
     Indication: Headache
     Dosage: 400 MG, PRN
     Route: 065
  4. HYDROCORTISONE [Concomitant]
     Active Substance: HYDROCORTISONE
     Indication: Dermatitis acneiform
     Dosage: UNK
     Route: 065
     Dates: start: 20210610
  5. ONDANSETRON [Concomitant]
     Active Substance: ONDANSETRON
     Indication: Nausea
     Dosage: 8 MG, PRN
     Route: 065
     Dates: start: 20210921
  6. QV [Concomitant]
     Indication: Therapeutic skin care topical
     Dosage: UNK
     Route: 065
     Dates: start: 202110
  7. METOCLOPRAMIDE [Concomitant]
     Active Substance: METOCLOPRAMIDE
     Indication: Nausea
     Dosage: TAKES ABOUT ONCE/WEEK
     Route: 065
     Dates: start: 202110

REACTIONS (2)
  - Paronychia [Recovered/Resolved]
  - Cellulitis [Recovered/Resolved]

NARRATIVE: CASE EVENT DATE: 20211017
